FAERS Safety Report 8356312-2 (Version None)
Quarter: 2012Q2

REPORT INFORMATION
  Report Type: 
  Country: None (occurrence: None)
  Receive Date: 20120514
  Receipt Date: 20110420
  Transmission Date: 20120825
  Serious: No
  Sender: FDA-Public Use
  Company Number: US-TEVA-2011001952

PATIENT
  Sex: Female
  Weight: 70.824 kg

DRUGS (6)
  1. NUVIGIL [Suspect]
     Dosage: 150 MILLIGRAM;
     Route: 048
     Dates: start: 20110419, end: 20110419
  2. HYDROCODONE BITARTRATE [Concomitant]
     Dates: start: 20100101
  3. COUMADIN [Concomitant]
     Dates: start: 20100701, end: 20110401
  4. NORETHINDRONE [Concomitant]
     Dates: start: 20110401
  5. LEXAPRO [Concomitant]
     Dates: start: 20010101
  6. NUVIGIL [Suspect]
     Indication: CIRCADIAN RHYTHM SLEEP DISORDER
     Dosage: 150 MILLIGRAM;
     Route: 048
     Dates: start: 20110407, end: 20110408

REACTIONS (1)
  - RASH ERYTHEMATOUS [None]
